FAERS Safety Report 8312301-5 (Version None)
Quarter: 2012Q2

REPORT INFORMATION
  Report Type: 
  Country: None (occurrence: None)
  Receive Date: 20120425
  Receipt Date: 20120413
  Transmission Date: 20120825
  Serious: Yes (Other)
  Sender: FDA-Public Use
  Company Number: US-ELI_LILLY_AND_COMPANY-US201204006155

PATIENT
  Age: 58 Year
  Sex: Male

DRUGS (2)
  1. TRAMADOL HYDROCHLORIDE [Concomitant]
  2. AXIRON [Suspect]
     Indication: BLOOD TESTOSTERONE DECREASED
     Dosage: UNK, UNKNOWN

REACTIONS (2)
  - OVERDOSE [None]
  - MANIA [None]
